FAERS Safety Report 8516641-6 (Version None)
Quarter: 2012Q3

REPORT INFORMATION
  Report Type: 
  Country: None (occurrence: None)
  Receive Date: 20120706
  Receipt Date: 20120602
  Transmission Date: 20120928
  Serious: No
  Sender: FDA-Public Use
  Company Number: 2012P1037103

PATIENT
  Age: 40 Year
  Sex: Female

DRUGS (1)
  1. CAMPHOR / CAPSACUM [Suspect]
     Indication: SUPPLEMENTATION THERAPY
     Dosage: TOP
     Route: 061
     Dates: start: 20120602

REACTIONS (4)
  - DIZZINESS [None]
  - FEELING DRUNK [None]
  - EYE SWELLING [None]
  - DISORIENTATION [None]
